FAERS Safety Report 6211159-8 (Version None)
Quarter: 2009Q2

REPORT INFORMATION
  Report Type: 
  Country: None (occurrence: None)
  Receive Date: 20090602
  Receipt Date: 20090522
  Transmission Date: 20091009
  Serious: Yes (Other)
  Sender: FDA-Public Use
  Company Number: US-ROCHE-634651

PATIENT
  Sex: Female
  Weight: 68.9 kg

DRUGS (2)
  1. PEG-INTERFERON A-2A (RO 25-8310) [Suspect]
     Indication: HEPATITIS C
     Dosage: FORM: PRE-FILLED SYRINGE (PFS)
     Route: 065
     Dates: start: 20081211
  2. RIBAPAK [Suspect]
     Indication: HEPATITIS C
     Dosage: DIVIDED DOSES
     Route: 065
     Dates: start: 20081211

REACTIONS (14)
  - BLOOD TRIGLYCERIDES INCREASED [None]
  - CHEST PAIN [None]
  - CHEST X-RAY ABNORMAL [None]
  - CONFUSIONAL STATE [None]
  - COUGH [None]
  - DIZZINESS [None]
  - FATIGUE [None]
  - IMPAIRED DRIVING ABILITY [None]
  - INJECTION SITE INFLAMMATION [None]
  - RASH [None]
  - SOMNOLENCE [None]
  - THYROID DISORDER [None]
  - WEIGHT INCREASED [None]
  - WHITE BLOOD CELL COUNT DECREASED [None]
